FAERS Safety Report 17336041 (Version 1)
Quarter: 2020Q1

REPORT INFORMATION
  Report Type: Spontaneous
  Country: FR (occurrence: FR)
  Receive Date: 20200128
  Receipt Date: 20200128
  Transmission Date: 20200409
  Serious: Yes (Hospitalization)
  Sender: FDA-Public Use
  Company Number: FR-PFIZER INC-2020033702

PATIENT
  Age: 81 Year
  Sex: Male
  Weight: 77 kg

DRUGS (3)
  1. COUMADINE [Interacting]
     Active Substance: WARFARIN SODIUM
     Indication: ATRIAL FIBRILLATION
     Dosage: 2 DF, 1X/DAY
     Route: 048
     Dates: end: 20191103
  2. FLUCONAZOLE. [Suspect]
     Active Substance: FLUCONAZOLE
     Indication: LUNG DISORDER
     Dosage: 100 MG, 1X/DAY
     Route: 048
     Dates: start: 20191029, end: 20191103
  3. AMOXICILLINE [AMOXICILLIN] [Interacting]
     Active Substance: AMOXICILLIN
     Indication: LUNG DISORDER
     Dosage: 3 G, 1X/DAY
     Route: 048
     Dates: start: 20191029, end: 20191103

REACTIONS (4)
  - Drug interaction [Recovered/Resolved]
  - International normalised ratio increased [Recovered/Resolved]
  - Haematuria [Recovered/Resolved]
  - Rectal haemorrhage [Recovered/Resolved]

NARRATIVE: CASE EVENT DATE: 20191103
